FAERS Safety Report 14377402 (Version 3)
Quarter: 2018Q3

REPORT INFORMATION
  Report Type: Spontaneous
  Country: FR (occurrence: FR)
  Receive Date: 20180111
  Receipt Date: 20180817
  Transmission Date: 20181010
  Serious: Yes (Other)
  Sender: FDA-Public Use
  Company Number: FR-PFIZER INC-2018008705

PATIENT
  Age: 78 Year
  Sex: Female
  Weight: 83 kg

DRUGS (6)
  1. DOXYCYCLINE MONOHYDRATE [Suspect]
     Active Substance: DOXYCYCLINE
     Indication: PROPHYLAXIS
     Dosage: 100 MG, UNK
     Route: 048
     Dates: start: 20171102, end: 20171201
  2. CUTACNYL [Suspect]
     Active Substance: BENZOYL PEROXIDE
     Dosage: 10 G, AS NEEDED
     Route: 003
     Dates: start: 20171116
  3. ERBITUX [Concomitant]
     Active Substance: CETUXIMAB
     Dosage: UNK
  4. FLUOROURACILE [Concomitant]
     Active Substance: FLUOROURACIL
     Dosage: UNK
  5. DOXYCYCLINE MONOHYDRATE [Suspect]
     Active Substance: DOXYCYCLINE
     Dosage: 200 MG, UNK
     Route: 048
     Dates: start: 20171201, end: 20171211
  6. OXALIPLATINE [Concomitant]
     Active Substance: OXALIPLATIN
     Dosage: UNK

REACTIONS (1)
  - Acute generalised exanthematous pustulosis [Recovered/Resolved]

NARRATIVE: CASE EVENT DATE: 20171209
